FAERS Safety Report 8763922 (Version 2)
Quarter: 2012Q4

REPORT INFORMATION
  Report Type: Spontaneous
  Country: US (occurrence: None)
  Receive Date: 20120827
  Receipt Date: 20120914
  Transmission Date: 20130627
  Serious: Yes (Other)
  Sender: FDA-Public Use
  Company Number: CRC-12-392

PATIENT

DRUGS (1)
  1. AZELASTINE HCL NASAL [Suspect]
     Dates: start: 201208

REACTIONS (2)
  - Eye infection [None]
  - Product contamination [None]
